FAERS Safety Report 9119216 (Version 1)
Quarter: 2013Q1

REPORT INFORMATION
  Report Type: Spontaneous
  Country: US (occurrence: US)
  Receive Date: 20130207
  Receipt Date: 20130207
  Transmission Date: 20140127
  Serious: Yes (Death, Other)
  Sender: FDA-Public Use
  Company Number: CHPA2013US002554

PATIENT
  Age: 41 Year
  Sex: Female

DRUGS (6)
  1. ACETAMINOPHEN (PARACETAMOL) [Suspect]
     Dosage: UNK, UNK
     Route: 048
  2. AMLODIPINE [Suspect]
     Dosage: UNK, UNK
     Route: 048
  3. AMITRIPTYLINE [Suspect]
     Dosage: UNK, UNK
     Route: 048
  4. BARBITURATES AND DERIVATIVES [Suspect]
     Dosage: UNK, UNK
     Route: 048
  5. BENZODIAZEPINES [Suspect]
     Dosage: UNK, UNK
     Route: 048
  6. NAPROXEN [Suspect]
     Dosage: UNK, UNK
     Route: 048

REACTIONS (4)
  - Completed suicide [Fatal]
  - Cardio-respiratory arrest [Unknown]
  - Cardiac arrest [None]
  - Respiratory arrest [None]
